FAERS Safety Report 5371676-X (Version None)
Quarter: 2007Q2

REPORT INFORMATION
  Report Type: 
  Country: None (occurrence: None)
  Receive Date: 20070625
  Receipt Date: 20070618
  Transmission Date: 20071010
  Serious: Yes (Hospitalization)
  Sender: FDA-Public Use
  Company Number: 2007SP007009

PATIENT
  Age: 57 Year
  Sex: Male
  Weight: 86 kg

DRUGS (2)
  1. TEMODAL [Suspect]
     Indication: GLIOBLASTOMA MULTIFORME
     Dosage: 160 MG; QD; PO
     Route: 048
     Dates: start: 20070313, end: 20070407
  2. DEXAMETHASONE TAB [Suspect]
     Indication: BRAIN OEDEMA
     Dosage: 6 MG; QD; PO
     Route: 048
     Dates: start: 20070204

REACTIONS (3)
  - DEPRESSED LEVEL OF CONSCIOUSNESS [None]
  - SEPTIC SHOCK [None]
  - STREPTOCOCCAL SEPSIS [None]
